FAERS Safety Report 11804451 (Version 1)
Quarter: 2015Q4

REPORT INFORMATION
  Report Type: Report from Study
  Country: CN (occurrence: CN)
  Receive Date: 20151204
  Receipt Date: 20151204
  Transmission Date: 20160305
  Serious: Yes (Hospitalization, Other)
  Sender: FDA-Public Use
  Company Number: CN-GILEAD-2015-0185673

PATIENT
  Age: 44 Year
  Sex: Male

DRUGS (2)
  1. ADEFOVIR DIPIVOXIL. [Suspect]
     Active Substance: ADEFOVIR DIPIVOXIL
     Indication: CHRONIC HEPATITIS C
     Route: 048
  2. ADEFOVIR DIPIVOXIL. [Suspect]
     Active Substance: ADEFOVIR DIPIVOXIL
     Indication: HEPATIC CIRRHOSIS

REACTIONS (6)
  - Osteomalacia [Recovered/Resolved]
  - Bone pain [Recovering/Resolving]
  - Blood phosphorus decreased [Recovered/Resolved]
  - Asthenia [Unknown]
  - Osteoporosis [Unknown]
  - Gait disturbance [Recovered/Resolved]
